FAERS Safety Report 4442035-9 (Version None)
Quarter: 2004Q3

REPORT INFORMATION
  Report Type: 
  Country: None (occurrence: None)
  Receive Date: 20040901
  Receipt Date: 20040824
  Transmission Date: 20050211
  Serious: Yes (Hospitalization, Other)
  Sender: FDA-Public Use
  Company Number: FRWYE002326AUG04

PATIENT
  Age: 47 Year
  Sex: Male

DRUGS (7)
  1. OXAZEPAM [Suspect]
     Dosage: ORAL
     Route: 048
  2. MEPRONIZINE (ACEPROMETAZINE/MEPROBAMATE, ,0) [Suspect]
  3. PERINDOPRIL (PERINDOPRIL, ,0) [Suspect]
  4. PROPRANOLOL [Suspect]
  5. LEPTICUR (TROPATEPINE HYDROCHLORIDE) [Concomitant]
  6. SULFARLEM (ANETHOLE TRITHIONE) [Concomitant]
  7. TICLID [Concomitant]

REACTIONS (6)
  - DRUG INTERACTION [None]
  - GLASGOW COMA SCALE ABNORMAL [None]
  - HYPOTENSION [None]
  - MALAISE [None]
  - MEDICATION ERROR [None]
  - SYNCOPE [None]
